FAERS Safety Report 10133424 (Version 2)
Quarter: 2014Q2

REPORT INFORMATION
  Report Type: Spontaneous
  Country: JP (occurrence: JP)
  Receive Date: 20140428
  Receipt Date: 20140512
  Transmission Date: 20141212
  Serious: Yes (Hospitalization)
  Sender: FDA-Public Use
  Company Number: JP-B.I. PHARMACEUTICALS,INC./RIDGEFIELD-2014-BI-17972NB

PATIENT
  Age: 79 Year
  Sex: Male

DRUGS (6)
  1. PRAZAXA [Suspect]
     Indication: ATRIAL FIBRILLATION
     Dosage: 110 MG
     Route: 048
  2. LOXONIN [Suspect]
     Indication: PRODUCT USED FOR UNKNOWN INDICATION
     Route: 048
  3. HALCION [Concomitant]
     Dosage: 0.125 MG
     Route: 048
  4. CRAVIT [Concomitant]
     Dosage: 500 MG
     Route: 048
  5. SILECE [Concomitant]
     Dosage: 1 MG
     Route: 048
  6. LASIX [Concomitant]
     Dosage: 40 MG
     Route: 048

REACTIONS (2)
  - Cellulitis [Unknown]
  - Gastrointestinal haemorrhage [Recovered/Resolved]
